FAERS Safety Report 17595899 (Version 1)
Quarter: 2020Q1

REPORT INFORMATION
  Report Type: Spontaneous
  Country: US (occurrence: US)
  Receive Date: 20200329
  Receipt Date: 20200329
  Transmission Date: 20200409
  Serious: No
  Sender: FDA-Public Use
  Company Number: US-TEVA-2020-US-1212317

PATIENT
  Sex: Female

DRUGS (1)
  1. DESIPRAMINE ACTAVIS [Suspect]
     Active Substance: DESIPRAMINE HYDROCHLORIDE
     Route: 065

REACTIONS (5)
  - Fatigue [Unknown]
  - Emotional disorder [Unknown]
  - Crying [Unknown]
  - Drug ineffective [Unknown]
  - Insomnia [Unknown]
